FAERS Safety Report 7390080-6 (Version None)
Quarter: 2011Q2

REPORT INFORMATION
  Report Type: 
  Country: None (occurrence: None)
  Receive Date: 20110401
  Receipt Date: 20110328
  Transmission Date: 20111010
  Serious: Yes (Hospitalization)
  Sender: FDA-Public Use
  Company Number: GB-PFIZER INC-2009239781

PATIENT
  Age: 27 Year
  Sex: Female

DRUGS (4)
  1. CYCLIZINE [Concomitant]
     Dosage: 50 MG, 3X/DAY
     Route: 048
  2. BETAHISTINE [Concomitant]
     Dosage: 16 MG, 3X/DAY
     Route: 048
  3. AMITRIPTYLINE [Concomitant]
     Dosage: 50 MG, 1X/DAY
     Route: 048
  4. IBUPROFEN [Suspect]
     Indication: MIGRAINE
     Dosage: 1 DF, UNK
     Route: 048
     Dates: end: 20060208

REACTIONS (8)
  - WEIGHT DECREASED [None]
  - RECTAL HAEMORRHAGE [None]
  - HAEMATEMESIS [None]
  - DIZZINESS [None]
  - ABDOMINAL PAIN UPPER [None]
  - DECREASED APPETITE [None]
  - VOMITING [None]
  - CONSTIPATION [None]
